FAERS Safety Report 7401694-9 (Version None)
Quarter: 2011Q1

REPORT INFORMATION
  Report Type: 
  Country: None (occurrence: None)
  Receive Date: 20110329
  Receipt Date: 20110314
  Transmission Date: 20110831
  Serious: Yes (Hospitalization, Other)
  Sender: FDA-Public Use
  Company Number: 2011-0885

PATIENT
  Age: 56 Year
  Sex: Female
  Weight: 60.5 kg

DRUGS (6)
  1. LANREOTIDE AUTOGEL (LANREOTIDE) (LANREOTIDE ACETATE) [Suspect]
     Indication: ACROMEGALY
     Dosage: 120 MG (120 MG, 1 IN 4 WK), SUBCUTANEOUS
     Route: 058
     Dates: start: 20100524, end: 20110107
  2. LOXONIN TAPE (LOXOPROFEN SODIUIM) [Concomitant]
  3. BLOPRESS (CANDESARTAN CILEXETIL) [Suspect]
     Indication: HYPERTENSION
     Dosage: 4 MG (4 MG, 1 IN 1 D), ORAL
     Route: 048
     Dates: start: 20021210
  4. GASCON (DIMETICONE) [Suspect]
     Indication: FLATULENCE
     Dosage: 80 MG (80 MG, 1 IN 1 D), ORAL
     Route: 048
     Dates: start: 20101008
  5. MUCOSTA (REBAMIPIDE) [Concomitant]
  6. MAGLAX (MAGNESIUM OXIDE) (MAGNESIUM OXIDE) [Suspect]
     Indication: FLATULENCE
     Dosage: 660 MG (660 MG, 1 IN 1 D), ORAL
     Route: 048
     Dates: start: 20101008

REACTIONS (5)
  - BILE DUCT STENOSIS [None]
  - PANCREATIC CARCINOMA [None]
  - BILIARY DILATATION [None]
  - GALLBLADDER ENLARGEMENT [None]
  - DIVERTICULUM INTESTINAL [None]
